FAERS Safety Report 9771432 (Version 1)
Quarter: 2013Q4

REPORT INFORMATION
  Report Type: Report from Study
  Country: US (occurrence: US)
  Receive Date: 20131219
  Receipt Date: 20131219
  Transmission Date: 20140711
  Serious: Yes (Death)
  Sender: FDA-Public Use
  Company Number: US-ROCHE-1322481

PATIENT
  Sex: Female

DRUGS (9)
  1. AVASTIN [Suspect]
     Indication: PRODUCT USED FOR UNKNOWN INDICATION
     Route: 042
  2. FENTANYL PATCH [Concomitant]
     Route: 065
  3. HYDROMORPHONE [Concomitant]
     Route: 048
  4. LIDOCAINE HYDROCHLORIDE [Concomitant]
  5. LORAZEPAM [Concomitant]
     Route: 042
  6. METOPROLOL TARTRATE [Concomitant]
     Route: 048
  7. HYDRALAZINE [Concomitant]
     Route: 042
  8. XGEVA [Concomitant]
     Route: 058
  9. LISINOPRIL [Concomitant]
     Route: 048

REACTIONS (1)
  - Death [Fatal]
